FAERS Safety Report 13045615 (Version 1)
Quarter: 2016Q4

REPORT INFORMATION
  Report Type: Report from Study
  Country: CO (occurrence: CO)
  Receive Date: 20161220
  Receipt Date: 20161220
  Transmission Date: 20170207
  Serious: Yes (Death, Hospitalization, Other)
  Sender: FDA-Public Use
  Company Number: PHHY2016CO077080

PATIENT
  Age: 57 Year
  Sex: Female
  Weight: 51 kg

DRUGS (4)
  1. PREDNISONE. [Concomitant]
     Active Substance: PREDNISONE
     Indication: PRODUCT USED FOR UNKNOWN INDICATION
     Route: 065
  2. EXEMESTANE. [Concomitant]
     Active Substance: EXEMESTANE
     Indication: PRODUCT USED FOR UNKNOWN INDICATION
     Route: 065
  3. AFINITOR [Suspect]
     Active Substance: EVEROLIMUS
     Indication: BREAST CANCER
     Dosage: 10 MG, QHS (EVERY NIGHT)
     Route: 048
     Dates: start: 20160323
  4. AROMASIN [Concomitant]
     Active Substance: EXEMESTANE
     Indication: TUMOUR CELL MOBILISATION
     Dosage: 25 MG, QD
     Route: 048

REACTIONS (20)
  - Death [Fatal]
  - Choking [Unknown]
  - Malignant neoplasm progression [Unknown]
  - Swelling [Unknown]
  - Dyspnoea [Unknown]
  - Skin exfoliation [Not Recovered/Not Resolved]
  - Back pain [Unknown]
  - Procedural pain [Unknown]
  - Decreased appetite [Unknown]
  - Perihepatic abscess [Unknown]
  - Abscess rupture [Unknown]
  - Musculoskeletal chest pain [Unknown]
  - Dysstasia [Not Recovered/Not Resolved]
  - Weight decreased [Unknown]
  - Headache [Unknown]
  - Crying [Unknown]
  - Blood pressure decreased [Unknown]
  - Pleural effusion [Unknown]
  - Pain [Not Recovered/Not Resolved]
  - Cough [Unknown]

NARRATIVE: CASE EVENT DATE: 2016
